FAERS Safety Report 15963087 (Version 2)
Quarter: 2019Q2

REPORT INFORMATION
  Report Type: Spontaneous
  Country: US (occurrence: US)
  Receive Date: 20190214
  Receipt Date: 20190416
  Transmission Date: 20190711
  Serious: Yes (Other)
  Sender: FDA-Public Use
  Company Number: US-BAYER-2019-031617

PATIENT
  Age: 45 Year
  Sex: Female

DRUGS (1)
  1. KYLEENA [Suspect]
     Active Substance: LEVONORGESTREL
     Indication: CONTRACEPTION
     Dosage: 20 MCG/24HR, CONT
     Route: 015
     Dates: start: 20190209, end: 20190209

REACTIONS (3)
  - Contraindicated device used [Not Recovered/Not Resolved]
  - Pregnancy with contraceptive device [None]
  - Medical device monitoring error [None]

NARRATIVE: CASE EVENT DATE: 20190209
